FAERS Safety Report 7573483-6 (Version None)
Quarter: 2011Q2

REPORT INFORMATION
  Report Type: 
  Country: None (occurrence: None)
  Receive Date: 20110627
  Receipt Date: 20110620
  Transmission Date: 20111010
  Serious: Yes (Hospitalization, Other)
  Sender: FDA-Public Use
  Company Number: US-JNJFOC-20100806025

PATIENT
  Sex: Male

DRUGS (2)
  1. LEVAQUIN [Suspect]
     Indication: BRONCHITIS
     Route: 048
     Dates: start: 20070205, end: 20070215
  2. LEVAQUIN [Suspect]
     Indication: BACTERIAL INFECTION
     Route: 048
     Dates: start: 20070205, end: 20070215

REACTIONS (4)
  - TENOSYNOVITIS STENOSANS [None]
  - TENDON RUPTURE [None]
  - ROTATOR CUFF SYNDROME [None]
  - TENDONITIS [None]
